APPROVED DRUG PRODUCT: LISINOPRIL
Active Ingredient: LISINOPRIL
Strength: 40MG
Dosage Form/Route: TABLET;ORAL
Application: A075994 | Product #006 | TE Code: AB
Applicant: CHARTWELL RX SCIENCES LLC
Approved: Jul 1, 2002 | RLD: No | RS: No | Type: RX